FAERS Safety Report 7821085-6 (Version None)
Quarter: 2011Q4

REPORT INFORMATION
  Report Type: 
  Country: None (occurrence: None)
  Receive Date: 20111018
  Receipt Date: 20111017
  Transmission Date: 20120403
  Serious: No
  Sender: FDA-Public Use
  Company Number: US-PFIZER INC-2011248360

PATIENT
  Sex: Female
  Weight: 81.63 kg

DRUGS (4)
  1. LIPITOR [Suspect]
     Dosage: UNK, DAILY
     Route: 048
  2. ASPIRIN [Concomitant]
     Dosage: UNK
  3. LIPITOR [Suspect]
     Indication: BLOOD CHOLESTEROL INCREASED
     Dosage: 20 MG, DAILY
     Route: 048
  4. PRAVASTATIN SODIUM [Suspect]
     Indication: BLOOD CHOLESTEROL INCREASED
     Dosage: 20 MG, DAILY
     Route: 048
     Dates: start: 20110101, end: 20110101

REACTIONS (2)
  - DYSPNOEA [None]
  - HEADACHE [None]
